FAERS Safety Report 25159614 (Version 1)
Quarter: 2025Q2

REPORT INFORMATION
  Report Type: Report from Study
  Country: US (occurrence: US)
  Receive Date: 20250404
  Receipt Date: 20250404
  Transmission Date: 20250717
  Serious: Yes (Hospitalization)
  Sender: EISAI
  Company Number: US-Eisai-EC-2025-186788

PATIENT
  Age: 76 Year
  Sex: Female

DRUGS (5)
  1. LENVIMA [Suspect]
     Active Substance: LENVATINIB
     Indication: Endometrial cancer
     Dates: start: 20240929, end: 20241125
  2. LENVIMA [Suspect]
     Active Substance: LENVATINIB
     Dates: start: 20241204, end: 20241222
  3. LENVIMA [Suspect]
     Active Substance: LENVATINIB
     Dates: start: 20250213, end: 20250217
  4. LENVIMA [Suspect]
     Active Substance: LENVATINIB
     Dates: start: 20250306, end: 20250323
  5. KEYTRUDA [Concomitant]
     Active Substance: PEMBROLIZUMAB

REACTIONS (3)
  - Lethargy [Unknown]
  - Decreased appetite [Unknown]
  - Dehydration [Unknown]

NARRATIVE: CASE EVENT DATE: 20250323
